FAERS Safety Report 18851193 (Version 1)
Quarter: 2021Q1

REPORT INFORMATION
  Report Type: Spontaneous
  Country: FR (occurrence: FR)
  Receive Date: 20210205
  Receipt Date: 20210205
  Transmission Date: 20210420
  Serious: Yes (Other)
  Sender: FDA-Public Use
  Company Number: FR-TEVA-2021-FR-1875911

PATIENT
  Age: 52 Year
  Sex: Male

DRUGS (8)
  1. HALOPERIDOL. [Suspect]
     Active Substance: HALOPERIDOL
     Indication: PRODUCT USED FOR UNKNOWN INDICATION
     Dosage: 14MG
     Route: 048
     Dates: start: 201910
  2. CARBAMAZEPINE. [Suspect]
     Active Substance: CARBAMAZEPINE
     Indication: PRODUCT USED FOR UNKNOWN INDICATION
     Dosage: 400MG
     Route: 048
     Dates: start: 201910, end: 20210101
  3. LOXAPINE BASE [Suspect]
     Active Substance: LOXAPINE
     Indication: PRODUCT USED FOR UNKNOWN INDICATION
     Dosage: 150MG
     Route: 048
     Dates: start: 202008
  4. LEPTICUR [Concomitant]
     Active Substance: TROPATEPINE HYDROCHLORIDE
  5. ACIDE VALPROIQUE [Suspect]
     Active Substance: VALPROIC ACID
     Indication: PRODUCT USED FOR UNKNOWN INDICATION
     Dosage: 1000MG
     Route: 048
     Dates: start: 201910
  6. AMLODIPINE [Concomitant]
     Active Substance: AMLODIPINE BESYLATE
  7. ZOPICLONE [Concomitant]
     Active Substance: ZOPICLONE
  8. DIAZEPAM. [Concomitant]
     Active Substance: DIAZEPAM

REACTIONS (1)
  - Neutropenia [Not Recovered/Not Resolved]

NARRATIVE: CASE EVENT DATE: 20201126
